FAERS Safety Report 5734578-2 (Version None)
Quarter: 2008Q2

REPORT INFORMATION
  Report Type: 
  Country: None (occurrence: None)
  Receive Date: 20080508
  Receipt Date: 20080428
  Transmission Date: 20081010
  Serious: Yes (Other)
  Sender: FDA-Public Use
  Company Number: 4300022K07USA

PATIENT
  Age: 46 Year
  Sex: Female
  Weight: 53.5244 kg

DRUGS (3)
  1. NOVANTRONE [Suspect]
     Indication: MULTIPLE SCLEROSIS
     Dosage: 12 MG/M2, NOT REPORTED, NOT REPORTED
     Dates: end: 20070101
  2. REBIF [Concomitant]
  3. FLUOXETINE [Concomitant]

REACTIONS (1)
  - EJECTION FRACTION DECREASED [None]
